FAERS Safety Report 10330774 (Version 1)
Quarter: 2014Q3

REPORT INFORMATION
  Report Type: Spontaneous
  Country: US (occurrence: None)
  Receive Date: 20140718
  Receipt Date: 20140718
  Transmission Date: 20150326
  Serious: Yes (Other)
  Sender: FDA-Public Use
  Company Number: None

PATIENT
  Age: 69 Year
  Sex: Male
  Weight: 113.4 kg

DRUGS (1)
  1. XARELTO [Suspect]
     Active Substance: RIVAROXABAN
     Indication: CARDIAC FLUTTER
     Route: 048
     Dates: start: 20140121, end: 20140709

REACTIONS (6)
  - Dizziness [None]
  - Dysarthria [None]
  - Muscular weakness [None]
  - Confusional state [None]
  - Back pain [None]
  - Chromaturia [None]

NARRATIVE: CASE EVENT DATE: 20140709
